FAERS Safety Report 7867855-X (Version None)
Quarter: 2011Q4

REPORT INFORMATION
  Report Type: 
  Country: None (occurrence: None)
  Receive Date: 20111028
  Receipt Date: 20111018
  Transmission Date: 20120403
  Serious: Yes (Other)
  Sender: FDA-Public Use
  Company Number: CA-JNJFOC-20110610217

PATIENT
  Sex: Male
  Weight: 71.5 kg

DRUGS (6)
  1. TYLENOL-500 [Concomitant]
     Indication: PREMEDICATION
     Route: 048
  2. REMICADE [Suspect]
     Indication: CROHN'S DISEASE
     Route: 042
     Dates: start: 20080620
  3. ELAVIL [Concomitant]
     Route: 048
  4. BENADRYL [Concomitant]
     Indication: PREMEDICATION
     Route: 042
  5. REMICADE [Suspect]
     Route: 042
     Dates: start: 20110101
  6. SOLU-CORTEF [Concomitant]
     Indication: PREMEDICATION
     Route: 042

REACTIONS (3)
  - MUSCULAR WEAKNESS [None]
  - FALL [None]
  - PAIN [None]
